FAERS Safety Report 5494088-7 (Version None)
Quarter: 2007Q4

REPORT INFORMATION
  Report Type: 
  Country: None (occurrence: None)
  Receive Date: 20071023
  Receipt Date: 20071002
  Transmission Date: 20080405
  Serious: Yes (Other)
  Sender: FDA-Public Use
  Company Number: DE-PFIZER INC-2007087692

PATIENT
  Sex: Female

DRUGS (6)
  1. CHAMPIX [Suspect]
     Indication: SMOKING CESSATION THERAPY
     Route: 048
     Dates: start: 20070802, end: 20070925
  2. APONAL [Concomitant]
     Route: 048
  3. DOXEPIN HCL [Concomitant]
     Route: 048
  4. METFORMIN [Concomitant]
     Route: 048
  5. SIMVASTATIN [Concomitant]
     Route: 048
  6. ENALAPRIL MALEATE [Concomitant]
     Route: 048

REACTIONS (1)
  - DEPRESSION [None]
